FAERS Safety Report 13076156 (Version 1)
Quarter: 2016Q4

REPORT INFORMATION
  Report Type: Spontaneous
  Country: US (occurrence: US)
  Receive Date: 20161230
  Receipt Date: 20161230
  Transmission Date: 20170207
  Serious: No
  Sender: FDA-Public Use
  Company Number: US-SUPERNUS PHARMACEUTICALS, INC.-2016SUP00020

PATIENT
  Age: 41 Year
  Sex: Female
  Weight: 126.98 kg

DRUGS (10)
  1. OXTELLAR XR [Suspect]
     Active Substance: OXCARBAZEPINE
     Indication: BLEPHAROSPASM
     Dosage: 300 MG, 1X/DAY
     Route: 048
     Dates: start: 201510
  2. OXTELLAR XR [Suspect]
     Active Substance: OXCARBAZEPINE
     Indication: HYPOAESTHESIA
  3. TOPAMAX [Concomitant]
     Active Substance: TOPIRAMATE
     Dosage: 100 MG, 2X/DAY
  4. OXTELLAR XR [Suspect]
     Active Substance: OXCARBAZEPINE
     Indication: BLEPHAROSPASM
     Dosage: 600 MG, 1X/DAY
     Route: 048
     Dates: start: 201510
  5. CELEXA [Concomitant]
     Active Substance: CITALOPRAM HYDROBROMIDE
     Dosage: 20 MG, 1X/DAY
  6. TECFIDERA [Concomitant]
     Active Substance: DIMETHYL FUMARATE
     Dosage: 240 MG, 2X/DAY
  7. OXTELLAR XR [Suspect]
     Active Substance: OXCARBAZEPINE
     Indication: HYPOAESTHESIA
  8. OXTELLAR XR [Suspect]
     Active Substance: OXCARBAZEPINE
     Indication: EYE PAIN
  9. OXTELLAR XR [Suspect]
     Active Substance: OXCARBAZEPINE
     Indication: EYE PAIN
  10. KLONOPIN [Concomitant]
     Active Substance: CLONAZEPAM
     Dosage: 2 MG, 1X/DAY

REACTIONS (3)
  - Headache [Not Recovered/Not Resolved]
  - Off label use [Not Recovered/Not Resolved]
  - Salt craving [Not Recovered/Not Resolved]

NARRATIVE: CASE EVENT DATE: 201510
